FAERS Safety Report 15414111 (Version 1)
Quarter: 2018Q3

REPORT INFORMATION
  Report Type: Report from Study
  Country: JP (occurrence: JP)
  Receive Date: 20180921
  Receipt Date: 20180921
  Transmission Date: 20181010
  Serious: Yes (Other)
  Sender: FDA-Public Use
  Company Number: JP-TEVA-2018-JP-956988

PATIENT
  Age: 18 Year
  Sex: Male

DRUGS (9)
  1. CYTARABINE. [Suspect]
     Active Substance: CYTARABINE
     Indication: ACUTE MYELOID LEUKAEMIA
     Dosage: 3 G/M2 X 2 PART OF HCEI CHEMOTHERAPY; ON DAYS 1?3; ADMINISTERED THROUGH CENTRAL VENOUS CATHETER
     Route: 042
  2. MITOXANTRONE [Suspect]
     Active Substance: MITOXANTRONE HYDROCHLORIDE
     Indication: ACUTE MYELOID LEUKAEMIA
     Dosage: PART OF HCM CHEMOTHERAPY; ON DAYS 1?3; ADMINISTERED THROUGH CENTRAL VENOUS CATHETER
     Route: 042
  3. IDARUBICIN [Suspect]
     Active Substance: IDARUBICIN
     Indication: ACUTE MYELOID LEUKAEMIA
     Dosage: PART OF HCEI CHEMOTHERAPY; ON DAYS 1; ADMINISTERED THROUGH CENTRAL VENOUS CATHETER
     Route: 042
  4. ETOPOSIDE. [Suspect]
     Active Substance: ETOPOSIDE
     Indication: ACUTE MYELOID LEUKAEMIA
     Dosage: PART OF ECM CHEMOTHERAPY; ON DAYS 1?5; ADMINISTERED THROUGH CENTRAL VENOUS CATHETER
     Route: 042
  5. ETOPOSIDE. [Suspect]
     Active Substance: ETOPOSIDE
     Indication: ACUTE MYELOID LEUKAEMIA
     Dosage: PART OF HCEI CHEMOTHERAPY; ON DAYS 1?5; ADMINISTERED THROUGH CENTRAL VENOUS CATHETER
     Route: 042
  6. CYTARABINE. [Suspect]
     Active Substance: CYTARABINE
     Indication: ACUTE MYELOID LEUKAEMIA
     Dosage: 3 G/M2 X 2 PART OF HCM CHEMOTHERAPY; ON DAYS 1?5; ADMINISTERED THROUGH CENTRAL VENOUS CATHETER
     Route: 042
  7. MITOXANTRONE [Suspect]
     Active Substance: MITOXANTRONE HYDROCHLORIDE
     Indication: ACUTE MYELOID LEUKAEMIA
     Dosage: PART OF ECM CHEMOTHERAPY; ON DAYS 6?10; ADMINISTERED THROUGH CENTRAL VENOUS CATHETER
     Route: 042
  8. VORICONAZOLE. [Concomitant]
     Active Substance: VORICONAZOLE
     Indication: PROPHYLAXIS
     Dosage: 10 MG/KG DAILY;
     Route: 048
  9. CYTARABINE. [Suspect]
     Active Substance: CYTARABINE
     Indication: ACUTE MYELOID LEUKAEMIA
     Dosage: PART OF ECM CHEMOTHERAPY; ON DAYS 6?12; ADMINISTERED THROUGH CENTRAL VENOUS CATHETER
     Route: 042

REACTIONS (1)
  - Lower respiratory tract infection fungal [Unknown]
